FAERS Safety Report 17983733 (Version 1)
Quarter: 2020Q3

REPORT INFORMATION
  Report Type: Spontaneous
  Country: US (occurrence: US)
  Receive Date: 20200703
  Receipt Date: 20200703
  Transmission Date: 20201103
  Serious: Yes (Other)
  Sender: FDA-Public Use
  Company Number: None

PATIENT
  Age: 55 Year
  Sex: Male
  Weight: 88 kg

DRUGS (1)
  1. IOHEXOL (IOHEXOL 302MG/ML INJ) [Suspect]
     Active Substance: IOHEXOL
     Indication: COMPUTERISED TOMOGRAM ABDOMEN
     Route: 042
     Dates: start: 20200301, end: 20200301

REACTIONS (5)
  - Hypovolaemia [None]
  - Blood urea increased [None]
  - Abdominal wall haematoma [None]
  - Acute kidney injury [None]
  - Blood creatinine increased [None]

NARRATIVE: CASE EVENT DATE: 20200301
